FAERS Safety Report 9304899 (Version 1)
Quarter: 2013Q2

REPORT INFORMATION
  Report Type: Spontaneous
  Country: HR (occurrence: None)
  Receive Date: 20130521
  Receipt Date: 20130521
  Transmission Date: 20140414
  Serious: Yes (Death)
  Sender: FDA-Public Use
  Company Number: THQ2013A03649

PATIENT
  Sex: Female

DRUGS (3)
  1. LANSOPRAZOLE (LANSOPRAZOLE) [Suspect]
     Dates: start: 2009
  2. AMLODIPINE [Concomitant]
  3. HYDROCHLOROTHIAZIDE [Concomitant]

REACTIONS (2)
  - Stevens-Johnson syndrome [None]
  - Sepsis [None]
